FAERS Safety Report 8510870-3 (Version None)
Quarter: 2012Q3

REPORT INFORMATION
  Report Type: 
  Country: None (occurrence: None)
  Receive Date: 20120703
  Receipt Date: 20120620
  Transmission Date: 20120928
  Serious: Yes (Other)
  Sender: FDA-Public Use
  Company Number: 2012P1043031

PATIENT
  Age: 63 Year
  Sex: Female

DRUGS (1)
  1. MITOMYCIN [Suspect]
     Dosage: TOP
     Route: 061

REACTIONS (1)
  - NECROTISING SCLERITIS [None]
